FAERS Safety Report 4277669-8 (Version None)
Quarter: 2004Q1

REPORT INFORMATION
  Report Type: 
  Country: None (occurrence: None)
  Receive Date: 20040121
  Receipt Date: 20040112
  Transmission Date: 20041129
  Serious: Yes (Death, Hospitalization, Other)
  Sender: FDA-Public Use
  Company Number: 2003161679US

PATIENT
  Age: 63 Year
  Sex: Male
  Weight: 90.7 kg

DRUGS (13)
  1. BEXTRA [Suspect]
     Indication: ARTHRALGIA
     Dosage: 10 MG, ONCE TO TWICE A DAY, ORAL
     Route: 048
     Dates: start: 20030515, end: 20030522
  2. HUMALOG [Concomitant]
  3. DYAZIDE [Concomitant]
  4. ATENOLOL [Concomitant]
  5. SYNTHROID [Concomitant]
  6. ENALAPRIL MALEATE [Concomitant]
  7. MULTIVITAMINS (PANTHENOL, RETINOL, ERGOCALCIFEROL) [Concomitant]
  8. ACETYLSALICYLIC ACID SRT [Concomitant]
  9. VITAMIN B-12 [Concomitant]
  10. IRON [Concomitant]
  11. GLUCOSAMINE W/CHONDROITIN SULFATES (MANGANESE) [Concomitant]
  12. VITAMIN E [Concomitant]
  13. COSOPT [Concomitant]

REACTIONS (17)
  - ATELECTASIS [None]
  - COMA [None]
  - DIABETES MELLITUS INADEQUATE CONTROL [None]
  - DISSEMINATED INTRAVASCULAR COAGULATION [None]
  - DRUG HYPERSENSITIVITY [None]
  - HEPATIC FAILURE [None]
  - HEPATIC INFARCTION [None]
  - HEPATOCELLULAR DAMAGE [None]
  - IMPETIGO [None]
  - PULMONARY EMBOLISM [None]
  - RENAL FAILURE ACUTE [None]
  - RESPIRATORY ARREST [None]
  - SEPTIC SHOCK [None]
  - SHOCK [None]
  - STREPTOCOCCAL INFECTION [None]
  - TACHYCARDIA [None]
  - TOXIC EPIDERMAL NECROLYSIS [None]
